FAERS Safety Report 12217983 (Version 2)
Quarter: 2016Q2

REPORT INFORMATION
  Report Type: Report from Study
  Country: US (occurrence: US)
  Receive Date: 20160329
  Receipt Date: 20160511
  Transmission Date: 20160815
  Serious: Yes (Hospitalization, Other)
  Sender: FDA-Public Use
  Company Number: US-ACTELION-A-NJ2016-133427

PATIENT
  Age: 38 Year
  Sex: Female

DRUGS (7)
  1. CELEXA [Concomitant]
     Active Substance: CITALOPRAM HYDROBROMIDE
  2. MULTIVITAMIN [Concomitant]
     Active Substance: VITAMINS
  3. MACITENTAN [Suspect]
     Active Substance: MACITENTAN
     Indication: PULMONARY ARTERIAL HYPERTENSION
     Dosage: 10 MG, QD
     Route: 048
     Dates: start: 20140812
  4. ALBUTEROL. [Concomitant]
     Active Substance: ALBUTEROL
  5. ZANTAC [Concomitant]
     Active Substance: RANITIDINE HYDROCHLORIDE
  6. SYNTHROID [Concomitant]
     Active Substance: LEVOTHYROXINE SODIUM
  7. DEPO-PROVERA [Concomitant]
     Active Substance: MEDROXYPROGESTERONE ACETATE

REACTIONS (4)
  - Seizure [Unknown]
  - Oxygen saturation decreased [Recovering/Resolving]
  - Sepsis [Unknown]
  - Fall [Unknown]

NARRATIVE: CASE EVENT DATE: 20160317
